FAERS Safety Report 9454273 (Version 2)
Quarter: 2014Q1

REPORT INFORMATION
  Report Type: Spontaneous
  Country: NO (occurrence: NO)
  Receive Date: 20130812
  Receipt Date: 20140129
  Transmission Date: 20141002
  Serious: Yes (Disabling)
  Sender: FDA-Public Use
  Company Number: NO-BAYER-2013-093818

PATIENT
  Age: 19 Year
  Sex: Female
  Weight: 98 kg

DRUGS (2)
  1. YASMIN [Suspect]
     Dosage: UNK
     Dates: start: 2005, end: 201111
  2. LANSOPRAZOLE [Concomitant]
     Indication: REFLUX GASTRITIS
     Dosage: UNK

REACTIONS (9)
  - Fibromyalgia [Recovered/Resolved]
  - Acne [None]
  - Burning sensation [Recovered/Resolved]
  - Arthralgia [Recovered/Resolved]
  - Tendon pain [Recovered/Resolved]
  - Pain in extremity [Recovered/Resolved]
  - Musculoskeletal pain [Recovered/Resolved]
  - Arthralgia [Recovered/Resolved]
  - Tendonitis [Recovered/Resolved]
